FAERS Safety Report 6257053 (Version 2)
Quarter: 2013Q3

REPORT INFORMATION
  Report Type: Spontaneous
  Country: GB (occurrence: None)
  Receive Date: 20070223
  Receipt Date: 20130813
  Transmission Date: 20140515
  Serious: Yes (Life-Threatening, Hospitalization)
  Sender: FDA-Public Use
  Company Number: 2007US000331

PATIENT
  Age: 66 Year
  Sex: Male

DRUGS (1)
  1. ADENOSCAN [Suspect]
     Indication: SCAN MYOCARDIAL PERFUSION
     Dosage: 140 RK/MIN, IV NOS
     Route: 042

REACTIONS (4)
  - Angina pectoris [None]
  - Electrocardiogram ST-T segment elevation [None]
  - Arteriospasm coronary [None]
  - Arteriosclerosis coronary artery [None]
